FAERS Safety Report 7105110-6 (Version None)
Quarter: 2010Q4

REPORT INFORMATION
  Report Type: 
  Country: None (occurrence: None)
  Receive Date: 20101110
  Receipt Date: 20101026
  Transmission Date: 20110411
  Serious: Yes (Other)
  Sender: FDA-Public Use
  Company Number: 005938

PATIENT
  Sex: Male

DRUGS (3)
  1. CIMZIA [Suspect]
     Indication: CROHN'S DISEASE
     Dosage: 400 MG 1X/4 WEEKS, SUBCUTANEOUS
     Route: 058
     Dates: start: 20081201
  2. CIMZIA [Suspect]
  3. CIMZIA [Suspect]

REACTIONS (3)
  - ABDOMINAL NEOPLASM [None]
  - ABDOMINAL PAIN [None]
  - NEOPLASM MALIGNANT [None]
